FAERS Safety Report 8825822 (Version 1)
Quarter: 2012Q4

REPORT INFORMATION
  Report Type: 
  Country: GB (occurrence: GB)
  Receive Date: 20121004
  Receipt Date: 20121004
  Transmission Date: 20130627
  Serious: Yes (Other)
  Sender: FDA-Public Use
  Company Number: GB-TEVA-362585ISR

PATIENT
  Age: 74 Year
  Sex: Female

DRUGS (2)
  1. AZILECT [Suspect]
     Indication: PARKINSON^S DISEASE
     Dosage: 1 Milligram Daily;
     Route: 065
  2. PRAMIPEXOLE [Suspect]
     Dosage: .54 Milligram Daily;
     Route: 065

REACTIONS (3)
  - Pleurothotonus [Recovered/Resolved]
  - Parkinsonism [None]
  - Liver function test abnormal [None]
